FAERS Safety Report 5137281-5 (Version None)
Quarter: 2006Q4

REPORT INFORMATION
  Report Type: 
  Country: None (occurrence: None)
  Receive Date: 20061030
  Receipt Date: 20060905
  Transmission Date: 20070319
  Serious: Yes (Other)
  Sender: FDA-Public Use
  Company Number: FR-AVENTIS-200613084FR

PATIENT
  Age: 69 Year
  Sex: Male
  Weight: 81 kg

DRUGS (8)
  1. KETEK [Suspect]
     Indication: PNEUMONIA
     Route: 048
     Dates: start: 20060825, end: 20060828
  2. STILNOX                            /00914901/ [Concomitant]
     Route: 048
  3. CARDENSIEL [Concomitant]
     Route: 048
  4. AMLOR [Concomitant]
     Route: 048
  5. TRINIPATCH [Concomitant]
     Route: 023
  6. COVERSYL                           /00790701/ [Concomitant]
     Route: 048
  7. PRAVASTATIN [Concomitant]
     Route: 048
  8. OMEPRAZOLE [Concomitant]

REACTIONS (1)
  - ANGINA PECTORIS [None]
